FAERS Safety Report 16445230 (Version 1)
Quarter: 2019Q2

REPORT INFORMATION
  Report Type: Report from Study
  Country: US (occurrence: US)
  Receive Date: 20190618
  Receipt Date: 20190618
  Transmission Date: 20190711
  Serious: No
  Sender: FDA-Public Use
  Company Number: PHEH2019US025406

PATIENT
  Age: 42 Year
  Sex: Female

DRUGS (1)
  1. COSENTYX [Suspect]
     Active Substance: SECUKINUMAB
     Indication: PSORIASIS
     Dosage: 300 MG, (WEEKS 0, 1, 2, 3, AND 4)
     Route: 058

REACTIONS (3)
  - Hypersensitivity [Unknown]
  - Oropharyngeal pain [Unknown]
  - Head discomfort [Unknown]
